FAERS Safety Report 8663423 (Version 2)
Quarter: 2013Q2

REPORT INFORMATION
  Report Type: Spontaneous
  Country: GB (occurrence: GB)
  Receive Date: 20120713
  Receipt Date: 20130626
  Transmission Date: 20140414
  Serious: Yes (Hospitalization)
  Sender: FDA-Public Use
  Company Number: GB-PFIZER INC-2012165985

PATIENT
  Sex: Male
  Weight: 100 kg

DRUGS (3)
  1. AMLODIPINE BESILATE [Suspect]
     Indication: HYPERTENSION
     Dosage: 5 MG, UNK
     Route: 048
     Dates: start: 20120613, end: 20120628
  2. CODEINE [Concomitant]
     Indication: PAIN
     Dosage: 30 MG, UNK
     Route: 048
     Dates: start: 2008
  3. PARACETAMOL [Concomitant]
     Indication: PAIN
     Dosage: 500 MG, UNK
     Route: 048
     Dates: start: 2008

REACTIONS (1)
  - Testicular swelling [Recovering/Resolving]
